FAERS Safety Report 17663896 (Version 1)
Quarter: 2020Q2

REPORT INFORMATION
  Report Type: Spontaneous
  Country: CN (occurrence: CN)
  Receive Date: 20200414
  Receipt Date: 20200414
  Transmission Date: 20200713
  Serious: Yes (Other)
  Sender: FDA-Public Use
  Company Number: CN-ROCHE-2579958

PATIENT
  Age: 75 Year
  Sex: Male
  Weight: 65 kg

DRUGS (16)
  1. OXALIPLATIN. [Concomitant]
     Active Substance: OXALIPLATIN
     Indication: ADENOCARCINOMA OF COLON
     Route: 065
     Dates: start: 201512, end: 20160419
  2. OXALIPLATIN. [Concomitant]
     Active Substance: OXALIPLATIN
     Route: 065
     Dates: start: 20190723, end: 20200219
  3. IRINOTECAN [Concomitant]
     Active Substance: IRINOTECAN
     Indication: ADENOCARCINOMA OF COLON
     Route: 065
     Dates: start: 20200220
  4. ZOLEDRONIC ACID [Concomitant]
     Active Substance: ZOLEDRONIC ACID
     Route: 065
     Dates: start: 20190530, end: 20190723
  5. AVASTIN [Suspect]
     Active Substance: BEVACIZUMAB
     Indication: ADENOCARCINOMA OF COLON
     Route: 065
     Dates: start: 201512, end: 20160419
  6. AVASTIN [Suspect]
     Active Substance: BEVACIZUMAB
     Route: 065
     Dates: start: 20160510, end: 20170416
  7. 5-FLUOROURACIL [FLUOROURACIL] [Concomitant]
     Active Substance: FLUOROURACIL
     Indication: ADENOCARCINOMA OF COLON
     Route: 065
     Dates: start: 20141101, end: 20150321
  8. CALCIUM FOLINATE [Concomitant]
     Active Substance: LEUCOVORIN CALCIUM
     Indication: ADENOCARCINOMA OF COLON
     Route: 065
     Dates: start: 20141101, end: 20150321
  9. RALTITREXED [Concomitant]
     Active Substance: RALTITREXED
     Indication: ADENOCARCINOMA OF COLON
     Route: 065
     Dates: start: 20141101, end: 20150321
  10. CAPECITABINE. [Concomitant]
     Active Substance: CAPECITABINE
     Route: 065
     Dates: start: 20190530, end: 20190723
  11. OXALIPLATIN. [Concomitant]
     Active Substance: OXALIPLATIN
     Route: 065
     Dates: start: 20141101, end: 20150321
  12. CAPECITABINE. [Concomitant]
     Active Substance: CAPECITABINE
     Route: 065
     Dates: start: 20190723, end: 20200219
  13. RALTITREXED [Concomitant]
     Active Substance: RALTITREXED
     Route: 065
     Dates: start: 20160510, end: 20170416
  14. AVASTIN [Suspect]
     Active Substance: BEVACIZUMAB
     Route: 065
     Dates: start: 20170507, end: 20190416
  15. AVASTIN [Suspect]
     Active Substance: BEVACIZUMAB
     Route: 065
     Dates: start: 20190723, end: 20200219
  16. AVASTIN [Suspect]
     Active Substance: BEVACIZUMAB
     Route: 065
     Dates: start: 20190530, end: 20190723

REACTIONS (9)
  - Protein urine present [Unknown]
  - Palmar-plantar erythrodysaesthesia syndrome [Unknown]
  - Gastrointestinal disorder [Unknown]
  - Obstruction [Unknown]
  - Hepatic function abnormal [Unknown]
  - Bone marrow failure [Unknown]
  - Back pain [Unknown]
  - Diarrhoea [Unknown]
  - Hypertension [Unknown]
